FAERS Safety Report 10086837 (Version 2)
Quarter: 2014Q2

REPORT INFORMATION
  Report Type: Spontaneous
  Country: US (occurrence: US)
  Receive Date: 20140418
  Receipt Date: 20140418
  Transmission Date: 20141212
  Serious: Yes (Other)
  Sender: FDA-Public Use
  Company Number: US-JNJFOC-20140218034

PATIENT
  Age: 23 Year
  Sex: Female

DRUGS (3)
  1. STELARA [Suspect]
     Indication: PSORIASIS
     Route: 058
     Dates: start: 20111025, end: 20140107
  2. NORTREL [Concomitant]
     Indication: CONTRACEPTION
     Route: 065
  3. MULTIVITAMINS [Concomitant]
     Route: 065

REACTIONS (3)
  - Lymphoid tissue hyperplasia [Not Recovered/Not Resolved]
  - Night sweats [Not Recovered/Not Resolved]
  - Pruritus generalised [Not Recovered/Not Resolved]
